FAERS Safety Report 21861775 (Version 1)
Quarter: 2023Q1

REPORT INFORMATION
  Report Type: Spontaneous
  Country: DE (occurrence: DE)
  Receive Date: 20230113
  Receipt Date: 20230113
  Transmission Date: 20230418
  Serious: Yes (Hospitalization)
  Sender: FDA-Public Use
  Company Number: None

PATIENT
  Age: 25 Year
  Sex: Female

DRUGS (5)
  1. QUETIAPINE [Suspect]
     Active Substance: QUETIAPINE
     Indication: Product used for unknown indication
     Dosage: FOR MONTHS - B.A.W ,UNIT DOSE :400 MG ,FREQUENCY TIME 1 DAYS,FORM OF ADMIN UNKNOWN
  2. ESCITALOPRAM [Suspect]
     Active Substance: ESCITALOPRAM OXALATE
     Indication: Product used for unknown indication
     Dosage: FOR MONTHS - B.A.W,UNIT DOSE :10 MG ,FREQUENCY TIME 1 DAYS,FORM OF ADMIN UNKNOWN
  3. ZUCLOPENTHIXOL [Suspect]
     Active Substance: ZUCLOPENTHIXOL
     Indication: Product used for unknown indication
     Dosage: UNIT DOSE :30 MG ,FREQUENCY TIME 1 DAYS, DURATION 7 DAYS ,FORM OF ADMIN UNKNOWN
     Dates: start: 20220919, end: 20220926
  4. PIPAMPERONE HYDROCHLORIDE [Suspect]
     Active Substance: PIPAMPERONE HYDROCHLORIDE
     Indication: Product used for unknown indication
     Dosage: FOR MONTHS - B.A.W.,UNIT DOSE :20 MG ,FREQUENCY TIME 1 DAYS, FORM OF ADMIN UNKNOWN
  5. DESOGESTREL [Concomitant]
     Active Substance: DESOGESTREL
     Indication: Product used for unknown indication
     Dosage: UNIT DOSE :0.08 MG ,FREQUENCY TIME 1 DAYS, FORM OF ADMIN UNKNOWN
     Dates: start: 20220910

REACTIONS (5)
  - Blood creatine phosphokinase increased [Recovered/Resolved]
  - Tachycardia [Recovered/Resolved]
  - Blood pressure increased [Recovered/Resolved]
  - Body temperature decreased [Recovered/Resolved]
  - Parkinsonism [Recovered/Resolved]

NARRATIVE: CASE EVENT DATE: 20220925
